FAERS Safety Report 10004917 (Version 1)
Quarter: 2014Q1

REPORT INFORMATION
  Report Type: Report from Study
  Country: IN (occurrence: IN)
  Receive Date: 20140312
  Receipt Date: 20140312
  Transmission Date: 20141002
  Serious: Yes (Death, Hospitalization, Other)
  Sender: FDA-Public Use
  Company Number: PHHY2014IN029307

PATIENT
  Age: 54 Year
  Sex: Female

DRUGS (2)
  1. TASIGNA [Suspect]
     Indication: CHRONIC MYELOID LEUKAEMIA
     Dosage: 400 MG, BID
     Route: 048
     Dates: start: 20130301, end: 20140215
  2. CHEMOTHERAPEUTICS [Concomitant]

REACTIONS (5)
  - Respiratory failure [Fatal]
  - Pneumonia [Recovering/Resolving]
  - Haemoglobin decreased [Unknown]
  - Chronic myeloid leukaemia transformation [Unknown]
  - Platelet count decreased [Unknown]
